FAERS Safety Report 24270913 (Version 2)
Quarter: 2024Q4

REPORT INFORMATION
  Report Type: Report from Study
  Country: US (occurrence: US)
  Receive Date: 20240831
  Receipt Date: 20241105
  Transmission Date: 20250114
  Serious: Yes (Other)
  Sender: ABBVIE
  Company Number: US-ABBVIE-5900191

PATIENT
  Age: 85 Year
  Sex: Female

DRUGS (1)
  1. HUMIRA [Suspect]
     Active Substance: ADALIMUMAB
     Indication: Psoriasis
     Dosage: LAST ADMINISTRATION DATE WAS ON 2024
     Route: 058
     Dates: start: 20240508

REACTIONS (4)
  - Eye disorder [Unknown]
  - Lethargy [Unknown]
  - Eyelash changes [Unknown]
  - Eye abrasion [Unknown]

NARRATIVE: CASE EVENT DATE: 20240101
